FAERS Safety Report 25082907 (Version 1)
Quarter: 2025Q1

REPORT INFORMATION
  Report Type: Spontaneous
  Country: FR (occurrence: FR)
  Receive Date: 20250317
  Receipt Date: 20250317
  Transmission Date: 20250409
  Serious: Yes (Hospitalization)
  Sender: BOEHRINGER INGELHEIM
  Company Number: None

PATIENT
  Age: 67 Year
  Sex: Male
  Weight: 79 kg

DRUGS (11)
  1. OFEV [Suspect]
     Active Substance: NINTEDANIB
     Indication: Pulmonary fibrosis
     Dates: start: 202207, end: 202409
  2. OFEV [Suspect]
     Active Substance: NINTEDANIB
     Dates: start: 202409, end: 20250226
  3. TYVASO [Suspect]
     Active Substance: TREPROSTINIL
     Indication: Pulmonary arterial hypertension
     Dates: start: 20250120, end: 20250127
  4. TYVASO [Suspect]
     Active Substance: TREPROSTINIL
     Dates: start: 20250127, end: 20250203
  5. TYVASO [Suspect]
     Active Substance: TREPROSTINIL
     Dates: start: 20250203, end: 20250210
  6. TYVASO [Suspect]
     Active Substance: TREPROSTINIL
     Dates: start: 20250210, end: 20250217
  7. TYVASO [Suspect]
     Active Substance: TREPROSTINIL
     Dates: start: 20250217, end: 20250224
  8. TYVASO [Suspect]
     Active Substance: TREPROSTINIL
     Dates: start: 20250224, end: 20250225
  9. KARDEGIC [Suspect]
     Active Substance: ASPIRIN DL-LYSINE
     Indication: Product used for unknown indication
     Dates: end: 20250226
  10. IRBESARTAN [Concomitant]
     Active Substance: IRBESARTAN
     Indication: Product used for unknown indication
  11. HYDROCHLOROTHIAZIDE [Concomitant]
     Active Substance: HYDROCHLOROTHIAZIDE
     Indication: Product used for unknown indication

REACTIONS (1)
  - Haemorrhagic stroke [Recovering/Resolving]

NARRATIVE: CASE EVENT DATE: 20250224
